FAERS Safety Report 9543320 (Version 2)
Quarter: 2013Q3

REPORT INFORMATION
  Report Type: Report from Study
  Country: FR (occurrence: FR)
  Receive Date: 20130923
  Receipt Date: 20130923
  Transmission Date: 20140515
  Serious: Yes (Hospitalization)
  Sender: FDA-Public Use
  Company Number: FR-009507513-2012SP034937

PATIENT
  Age: 49 Year
  Sex: Male
  Weight: 65.7 kg

DRUGS (13)
  1. BOCEPREVIR [Suspect]
     Indication: HEPATITIS C
     Dosage: UNK
     Dates: start: 20110706, end: 20120507
  2. PEGINTERFERON ALFA-2B [Suspect]
     Indication: HEPATITIS C
     Dosage: 64 ?G, QW
     Dates: start: 20110608
  3. RIBAVIRIN [Suspect]
     Indication: HEPATITIS C
     Dosage: 600 MG, QD
     Dates: start: 20110608
  4. RALTEGRAVIR [Concomitant]
     Indication: HIV INFECTION
     Dosage: 400 MG, BID
     Dates: start: 20101209
  5. EMTRICITABINE (+) TENOFOVIR DISOPROXIL FUMARATE [Concomitant]
     Indication: HIV INFECTION
     Dosage: 200/245 DF
  6. SUBUTEX [Concomitant]
     Indication: DRUG WITHDRAWAL SYNDROME
     Dosage: 2 MG, QID
  7. ANAFRANIL [Concomitant]
     Indication: DEPRESSION
     Dosage: 75 MG, QD
     Dates: start: 20100331
  8. RANIPLEX [Concomitant]
     Indication: PRODUCT USED FOR UNKNOWN INDICATION
     Dosage: 300 MG, QD
     Dates: start: 20120605
  9. NUTRITIONAL SUPPLEMENTS [Concomitant]
     Indication: MALNUTRITION
     Dosage: 200 MG, UNK
     Dates: start: 20110705
  10. DOLIPRANE [Concomitant]
     Indication: INFLUENZA LIKE ILLNESS
     Dosage: 1000 MG, QD
     Dates: start: 20110802
  11. LEXOMIL [Concomitant]
     Indication: ANXIETY
     Dosage: 3 MG, QD
     Dates: start: 20120507
  12. TRIFLUCAN [Concomitant]
     Indication: OROPHARYNGEAL CANDIDIASIS
     Dosage: 50 MG, BID
     Dates: start: 20120605
  13. DEXERYL TABLETS [Concomitant]
     Indication: DRY SKIN
     Dates: start: 20110705

REACTIONS (1)
  - Hepatic lesion [Recovered/Resolved]
